FAERS Safety Report 7106317-4 (Version None)
Quarter: 2010Q4

REPORT INFORMATION
  Report Type: 
  Country: None (occurrence: None)
  Receive Date: 20101116
  Receipt Date: 20100512
  Transmission Date: 20110411
  Serious: No
  Sender: FDA-Public Use
  Company Number: US-PFIZER INC-2010030119

PATIENT
  Sex: Female
  Weight: 68 kg

DRUGS (5)
  1. TOVIAZ [Suspect]
     Indication: MICTURITION URGENCY
     Dosage: 4 MG, 1X/DAY DAILY DOSE: 4 MG
     Route: 048
     Dates: start: 20100304
  2. VITAMIN B COMPLEX CAP [Concomitant]
  3. ACETYLSALICYLIC ACID [Concomitant]
  4. CHROMIUM [Concomitant]
     Indication: DIABETES MELLITUS
  5. SYNTHROID [Concomitant]

REACTIONS (3)
  - ABNORMAL FAECES [None]
  - BOWEL MOVEMENT IRREGULARITY [None]
  - CONSTIPATION [None]
